FAERS Safety Report 6686019-9 (Version None)
Quarter: 2010Q2

REPORT INFORMATION
  Report Type: 
  Country: None (occurrence: None)
  Receive Date: 20100419
  Receipt Date: 20100409
  Transmission Date: 20101027
  Serious: Yes (Hospitalization)
  Sender: FDA-Public Use
  Company Number: FR-MPIJNJ-2010-02130

PATIENT

DRUGS (10)
  1. VELCADE [Suspect]
     Indication: MULTIPLE MYELOMA
     Dosage: 1.3 MG/M2, UNK
     Route: 042
     Dates: start: 20091212
  2. VELCADE [Suspect]
     Dosage: 1.3 MG/M2, UNK
     Route: 042
     Dates: start: 20100115, end: 20100205
  3. VELCADE [Suspect]
     Dosage: 1.3 MG/M2, UNK
     Route: 042
  4. AMLOR [Suspect]
     Indication: DRUG USE FOR UNKNOWN INDICATION
     Dosage: 5 MG, UNK
     Route: 048
     Dates: start: 20091201, end: 20100120
  5. AMLOR [Suspect]
     Dosage: 5 MG, UNK
     Route: 048
     Dates: start: 20100201, end: 20100224
  6. DEXAMETHASONE [Concomitant]
     Dosage: 20 UNK, UNK
     Route: 048
     Dates: start: 20091212
  7. DEXAMETHASONE [Concomitant]
     Dosage: 20 MG, UNK
     Dates: start: 20100115, end: 20100205
  8. DEXAMETHASONE [Concomitant]
     Dosage: 20 UNK, UNK
     Route: 048
     Dates: start: 20100301
  9. MOPRAL                             /00661201/ [Concomitant]
     Dosage: 20 MG, UNK
     Route: 048
     Dates: start: 20091201
  10. LASILIX                            /00032601/ [Concomitant]
     Dosage: 500 MG, UNK
     Route: 048
     Dates: start: 20091201

REACTIONS (1)
  - HEPATITIS CHOLESTATIC [None]
